FAERS Safety Report 21408730 (Version 1)
Quarter: 2022Q4

REPORT INFORMATION
  Report Type: Spontaneous
  Country: US (occurrence: US)
  Receive Date: 20221004
  Receipt Date: 20221004
  Transmission Date: 20230113
  Serious: Yes (Hospitalization, Other)
  Sender: FDA-Public Use
  Company Number: US-009507513-1305USA017845

PATIENT
  Sex: Female
  Weight: 64.399 kg

DRUGS (5)
  1. FOSAMAX [Suspect]
     Active Substance: ALENDRONATE SODIUM
     Indication: Osteoporosis
     Dosage: 70 MG, QW
     Route: 048
     Dates: start: 2000, end: 2010
  2. FOSAMAX [Suspect]
     Active Substance: ALENDRONATE SODIUM
     Indication: Osteoporosis prophylaxis
  3. VITAMINS NOS [Concomitant]
     Active Substance: VITAMINS
     Dosage: 1 DF, QD
     Dates: start: 1980
  4. VITAMIN D NOS [Concomitant]
     Active Substance: VITAMIN D NOS
     Dosage: 1000 MG, QD
     Dates: start: 1980
  5. FOLIC ACID [Concomitant]
     Active Substance: FOLIC ACID
     Dosage: 1 MG, QD
     Dates: start: 2000

REACTIONS (29)
  - Intramedullary rod insertion [Unknown]
  - Intramedullary rod insertion [Unknown]
  - Blood loss anaemia [Recovering/Resolving]
  - Spinal laminectomy [Unknown]
  - Spinal fusion surgery [Unknown]
  - Cholecystectomy [Unknown]
  - Chronic kidney disease [Not Recovered/Not Resolved]
  - Spinal nerve stimulator implantation [Unknown]
  - Sjogren^s syndrome [Unknown]
  - Gastric antral vascular ectasia [Unknown]
  - Hypokalaemia [Unknown]
  - Nephritis [Unknown]
  - Hypothyroidism [Unknown]
  - Transient ischaemic attack [Unknown]
  - Cataract operation [Unknown]
  - Femur fracture [Unknown]
  - Femur fracture [Recovered/Resolved]
  - Hypertension [Unknown]
  - Hypercholesterolaemia [Unknown]
  - Incision site erythema [Unknown]
  - Hypertensive heart disease [Unknown]
  - Restless legs syndrome [Unknown]
  - Spinal disorder [Unknown]
  - Lumbar radiculopathy [Unknown]
  - Arthritis [Unknown]
  - Lumbosacral radiculopathy [Unknown]
  - Post laminectomy syndrome [Unknown]
  - Lumbar spinal stenosis [Unknown]
  - Asthma [Unknown]

NARRATIVE: CASE EVENT DATE: 20000101
